FAERS Safety Report 4501655-3 (Version None)
Quarter: 2004Q4

REPORT INFORMATION
  Report Type: 
  Country: None (occurrence: None)
  Receive Date: 20041115
  Receipt Date: 20041115
  Transmission Date: 20050328
  Serious: No
  Sender: FDA-Public Use
  Company Number: None

PATIENT
  Sex: Female

DRUGS (2)
  1. ATIVAN [Suspect]
     Indication: ANXIETY
     Dosage: 0.5 MG ONE TABLET UP TO V DAILY
  2. ATIVAN [Suspect]
     Indication: SCHIZOPHRENIA
     Dosage: 0.5 MG ONE TABLET UP TO V DAILY

REACTIONS (12)
  - ANXIETY [None]
  - CONDITION AGGRAVATED [None]
  - COORDINATION ABNORMAL [None]
  - DEPRESSION [None]
  - DYSPNOEA [None]
  - INSOMNIA [None]
  - MUSCLE RIGIDITY [None]
  - MYALGIA [None]
  - NECK INJURY [None]
  - PHARMACEUTICAL PRODUCT COMPLAINT [None]
  - SLEEP DISORDER [None]
  - THINKING ABNORMAL [None]
